FAERS Safety Report 16451346 (Version 1)
Quarter: 2019Q2

REPORT INFORMATION
  Report Type: Spontaneous
  Country: US (occurrence: US)
  Receive Date: 20190619
  Receipt Date: 20190619
  Transmission Date: 20190711
  Serious: No
  Sender: FDA-Public Use
  Company Number: US-PFIZER INC-2019254472

PATIENT
  Age: 84 Year
  Sex: Female
  Weight: 74.83 kg

DRUGS (1)
  1. LYRICA [Suspect]
     Active Substance: PREGABALIN
     Dosage: 50 MG, 4X/DAY
     Route: 048

REACTIONS (3)
  - Off label use [Unknown]
  - Pain [Not Recovered/Not Resolved]
  - Back disorder [Not Recovered/Not Resolved]
